FAERS Safety Report 7368537-3 (Version None)
Quarter: 2011Q1

REPORT INFORMATION
  Report Type: 
  Country: None (occurrence: None)
  Receive Date: 20110317
  Receipt Date: 20110317
  Transmission Date: 20110831
  Serious: Yes (Hospitalization)
  Sender: FDA-Public Use
  Company Number: None

PATIENT
  Sex: Female

DRUGS (1)
  1. TYSABRI [Suspect]
     Indication: MULTIPLE SCLEROSIS
     Dosage: TYSABRI 300MG Q 4 WKS IV
     Route: 042
     Dates: start: 20100121, end: 20110311

REACTIONS (2)
  - EAR PAIN [None]
  - CEREBROVASCULAR ACCIDENT [None]
